FAERS Safety Report 7356293-4 (Version None)
Quarter: 2011Q1

REPORT INFORMATION
  Report Type: 
  Country: None (occurrence: None)
  Receive Date: 20110316
  Receipt Date: 20110302
  Transmission Date: 20110831
  Serious: Yes (Other)
  Sender: FDA-Public Use
  Company Number: FR-GENENTECH-305135

PATIENT
  Sex: Female
  Weight: 68 kg

DRUGS (5)
  1. TRAMADOL HCL [Suspect]
     Indication: PRODUCT USED FOR UNKNOWN INDICATION
     Dosage: UNK
     Dates: start: 20100704, end: 20100714
  2. METOPIMAZINE [Suspect]
     Indication: PRODUCT USED FOR UNKNOWN INDICATION
     Dosage: UNK
     Route: 048
     Dates: start: 20100620, end: 20100714
  3. RITUXIMAB [Suspect]
     Indication: ACUTE LYMPHOCYTIC LEUKAEMIA
     Dosage: UNK
     Route: 065
  4. KIDROLASE [Suspect]
     Indication: PRODUCT USED FOR UNKNOWN INDICATION
     Dosage: UNK
     Route: 042
     Dates: start: 20100714, end: 20100722
  5. KIDROLASE [Suspect]
     Dosage: 10200 IU, UNK
     Route: 042
     Dates: start: 20100716, end: 20100716

REACTIONS (2)
  - DRUG INTOLERANCE [None]
  - CEREBELLAR SYNDROME [None]
